FAERS Safety Report 10231661 (Version 1)
Quarter: 2014Q2

REPORT INFORMATION
  Report Type: Spontaneous
  Country: US (occurrence: US)
  Receive Date: 20140611
  Receipt Date: 20140611
  Transmission Date: 20141212
  Serious: Yes (Death)
  Sender: FDA-Public Use
  Company Number: US-ROCHE-1417306

PATIENT
  Age: 40 Year
  Sex: Female

DRUGS (8)
  1. XELODA [Suspect]
     Indication: BREAST CANCER FEMALE
     Route: 048
     Dates: start: 20130509
  2. XELODA [Suspect]
     Indication: BREAST CANCER
  3. XELODA [Suspect]
     Indication: BONE CANCER
  4. XELODA [Suspect]
     Indication: NEOPLASM MALIGNANT
  5. MORPHINE [Concomitant]
  6. ATIVAN [Concomitant]
  7. OXYCODONE [Concomitant]
  8. RANITIDINE [Concomitant]

REACTIONS (1)
  - Death [Fatal]
